FAERS Safety Report 5400358-0 (Version None)
Quarter: 2007Q3

REPORT INFORMATION
  Report Type: 
  Country: None (occurrence: None)
  Receive Date: 20070730
  Receipt Date: 20070725
  Transmission Date: 20080115
  Serious: Yes (Other)
  Sender: FDA-Public Use
  Company Number: A0666618A

PATIENT
  Age: 24 Year
  Sex: Female

DRUGS (1)
  1. BUPROPION HYDROCHLORIDE [Suspect]
     Indication: MAJOR DEPRESSION
     Dosage: 150MG PER DAY
     Route: 048
     Dates: start: 20051229, end: 20060101

REACTIONS (3)
  - CERVICAL INCOMPETENCE [None]
  - DELIVERY [None]
  - GESTATIONAL DIABETES [None]
